FAERS Safety Report 8079748-6 (Version None)
Quarter: 2012Q1

REPORT INFORMATION
  Report Type: 
  Country: None (occurrence: None)
  Receive Date: 20120128
  Receipt Date: 20110718
  Transmission Date: 20120608
  Serious: Yes (Other)
  Sender: FDA-Public Use
  Company Number: US-ABBOTT-11P-163-0840469-00

PATIENT
  Age: 48 Year
  Sex: Female

DRUGS (12)
  1. DEXEDRINE [Concomitant]
     Indication: PRODUCT USED FOR UNKNOWN INDICATION
  2. HUMIRA [Suspect]
     Dates: start: 20100628
  3. LASIX [Concomitant]
     Indication: PRODUCT USED FOR UNKNOWN INDICATION
  4. HUMIRA [Suspect]
     Indication: PSORIASIS
     Dates: start: 20110301
  5. OMEPRAZOLE [Concomitant]
     Indication: GASTROOESOPHAGEAL REFLUX DISEASE
  6. LOVOXYL [Concomitant]
     Indication: HYPOTHYROIDISM
  7. POTASSIUM CHLORIDE [Concomitant]
     Indication: BLOOD POTASSIUM DECREASED
     Dosage: 100 MG DAILY
  8. TRAZODONE HCL [Concomitant]
     Indication: ANXIETY
  9. LISINOPRIL [Concomitant]
     Indication: HYPERTENSION
  10. TRAZODONE HCL [Concomitant]
     Indication: DEPRESSION
     Dosage: 300 MG DAILY
  11. CLONAZEPAM [Concomitant]
     Indication: ANXIETY
  12. SPIRONOLACTONE [Concomitant]
     Indication: PRODUCT USED FOR UNKNOWN INDICATION

REACTIONS (6)
  - SHOULDER OPERATION [None]
  - ABDOMINAL PAIN [None]
  - FATIGUE [None]
  - LIMB OPERATION [None]
  - PANCREATITIS [None]
  - KIDNEY SMALL [None]
